FAERS Safety Report 9720254 (Version 2)
Quarter: 2014Q1

REPORT INFORMATION
  Report Type: Spontaneous
  Country: FR (occurrence: FR)
  Receive Date: 20131129
  Receipt Date: 20140214
  Transmission Date: 20141002
  Serious: Yes (Hospitalization, Other)
  Sender: FDA-Public Use
  Company Number: FR-ASTRAZENECA-2013SE86097

PATIENT
  Age: 25465 Day
  Sex: Male

DRUGS (2)
  1. XEROQUEL [Suspect]
     Route: 048
  2. NOCTAMIDE [Suspect]
     Route: 048

REACTIONS (2)
  - Amaurosis [Recovered/Resolved with Sequelae]
  - Arteriogram carotid abnormal [Unknown]
